FAERS Safety Report 6153391-8 (Version None)
Quarter: 2009Q2

REPORT INFORMATION
  Report Type: 
  Country: None (occurrence: None)
  Receive Date: 20090413
  Receipt Date: 20090331
  Transmission Date: 20091009
  Serious: No
  Sender: FDA-Public Use
  Company Number: US-B.I. PHARMACEUTICALS,INC./RIDGEFIELD-2009-BP-04185BP

PATIENT

DRUGS (4)
  1. ATROVENT HFA [Suspect]
     Indication: CHRONIC OBSTRUCTIVE PULMONARY DISEASE
  2. CARDIZEM [Suspect]
  3. ALBUTEROL [Suspect]
  4. ADVAIR HFA [Concomitant]

REACTIONS (1)
  - RASH GENERALISED [None]
